FAERS Safety Report 6815321-2 (Version None)
Quarter: 2010Q2

REPORT INFORMATION
  Report Type: 
  Country: None (occurrence: None)
  Receive Date: 20100629
  Receipt Date: 20100614
  Transmission Date: 20101027
  Serious: Yes (Hospitalization)
  Sender: FDA-Public Use
  Company Number: 2010074524

PATIENT
  Sex: Male

DRUGS (1)
  1. FRAGMIN [Suspect]
     Dosage: 5000, SUBCUTANEOUS
     Route: 058

REACTIONS (2)
  - FOREIGN BODY [None]
  - NEEDLE ISSUE [None]
